FAERS Safety Report 7100230-4 (Version None)
Quarter: 2010Q4

REPORT INFORMATION
  Report Type: 
  Country: None (occurrence: None)
  Receive Date: 20101112
  Receipt Date: 20101021
  Transmission Date: 20110411
  Serious: Yes (Hospitalization)
  Sender: FDA-Public Use
  Company Number: ES-B.I. PHARMACEUTICALS,INC./RIDGEFIELD-2010-DE-05898BY

PATIENT
  Age: 84 Year
  Sex: Female

DRUGS (8)
  1. PRITOR PLUS [Suspect]
     Indication: HYPERTENSION
     Dosage: 1 ANZ
     Route: 048
     Dates: start: 20090817, end: 20100511
  2. SEGURIL [Suspect]
     Indication: HYPERTENSION
     Dosage: 20 MG
     Route: 048
     Dates: start: 20090316, end: 20100515
  3. ZARATOR [Concomitant]
     Indication: HYPERCHOLESTEROLAEMIA
     Dosage: 80 MG
     Route: 048
     Dates: start: 20090817
  4. PLAVIX [Concomitant]
     Indication: PROPHYLAXIS
     Dosage: 75 MG
     Route: 048
     Dates: start: 20090227
  5. TEGRETOL [Concomitant]
     Indication: NEURALGIA
     Dosage: 50 COMPRIMIDOS
     Route: 048
     Dates: start: 20090227
  6. MEMANTINE HCL [Concomitant]
     Indication: DEMENTIA ALZHEIMER'S TYPE
     Dosage: 112 COMPRIMIDOS
     Route: 048
     Dates: start: 20090316
  7. ALTISBEN [Concomitant]
     Dosage: 30 COMPRIMIDOS RECUBIERTOS CON PELICULA
  8. MINITRAN 5 [Concomitant]
     Dosage: 7 PARCHES

REACTIONS (3)
  - HYPERHIDROSIS [None]
  - HYPONATRAEMIA [None]
  - MUTISM [None]
